FAERS Safety Report 18263547 (Version 1)
Quarter: 2020Q3

REPORT INFORMATION
  Report Type: Spontaneous
  Country: FR (occurrence: FR)
  Receive Date: 20200914
  Receipt Date: 20200914
  Transmission Date: 20201103
  Serious: Yes (Hospitalization)
  Sender: FDA-Public Use
  Company Number: NVSC2020FR247411

PATIENT
  Age: 50 Year
  Sex: Male
  Weight: 93 kg

DRUGS (7)
  1. BRILIQUE [Suspect]
     Active Substance: TICAGRELOR
     Indication: THROMBOSIS PROPHYLAXIS
     Dosage: 2 DF, QD
     Route: 048
     Dates: start: 20200104, end: 20200114
  2. IMOVANE [Suspect]
     Active Substance: ZOPICLONE
     Indication: SLEEP DISORDER
     Dosage: 1 DF, QD
     Route: 048
     Dates: start: 20200104, end: 20200114
  3. CODOLIPRANE [Suspect]
     Active Substance: ACETAMINOPHEN\CODEINE PHOSPHATE
     Indication: PAIN
     Dosage: UNK
     Route: 048
     Dates: start: 20200104, end: 20200114
  4. OMNIPAQUE [Suspect]
     Active Substance: IOHEXOL
     Indication: ANGIOCARDIOGRAM
     Dosage: 1 DF, UNKNOWN
     Route: 042
     Dates: start: 20200104, end: 20200104
  5. KARDEGIC [Suspect]
     Active Substance: ASPIRIN DL-LYSINE
     Indication: THROMBOSIS PROPHYLAXIS
     Dosage: UNK ( 75 MG, POUDRE POUR SOLUTION BUVABLE EN SACHET?DOSE)
     Route: 048
     Dates: start: 20200104, end: 20200114
  6. ATORVASTATIN [Suspect]
     Active Substance: ATORVASTATIN
     Indication: THROMBOSIS PROPHYLAXIS
     Dosage: UNK
     Route: 048
     Dates: start: 20200104, end: 20200111
  7. INEXIUM [Suspect]
     Active Substance: ESOMEPRAZOLE
     Indication: GASTRITIS PROPHYLAXIS
     Dosage: 1 DF, QD (40 MG, COMPRIM? GASTRO?R?SISTANT)
     Route: 048
     Dates: start: 20200104, end: 20200114

REACTIONS (2)
  - Mouth ulceration [Recovering/Resolving]
  - Rash maculo-papular [Recovering/Resolving]

NARRATIVE: CASE EVENT DATE: 20200113
